FAERS Safety Report 9024666 (Version 2)
Quarter: 2013Q3

REPORT INFORMATION
  Report Type: Report from Study
  Country: GB (occurrence: GB)
  Receive Date: 20130121
  Receipt Date: 20130916
  Transmission Date: 20140515
  Serious: Yes (Other)
  Sender: FDA-Public Use
  Company Number: GB-009507513-1301GBR007215

PATIENT
  Age: 75 Year
  Sex: Female
  Weight: 65.1 kg

DRUGS (3)
  1. ALENDRONATE SODIUM [Suspect]
     Indication: OSTEOPOROSIS
     Dosage: UNK, QW
     Route: 048
     Dates: start: 20071219, end: 20130904
  2. CALCICHEW D3 FORTE [Concomitant]
     Indication: OSTEOPOROSIS
     Dosage: UNK, QD
     Dates: start: 20040505
  3. ALENDRONIC ACID [Concomitant]
     Indication: OSTEOPOROSIS
     Dosage: UNK UNK, QW
     Dates: start: 20071219

REACTIONS (4)
  - Fall [Unknown]
  - Wrist fracture [Unknown]
  - Forearm fracture [Unknown]
  - Fracture [Unknown]
